FAERS Safety Report 14020701 (Version 2)
Quarter: 2017Q4

REPORT INFORMATION
  Report Type: Spontaneous
  Country: US (occurrence: US)
  Receive Date: 20170928
  Receipt Date: 20171027
  Transmission Date: 20180321
  Serious: No
  Sender: FDA-Public Use
  Company Number: US-ASTRAZENECA-2017SE98209

PATIENT
  Age: 20865 Day
  Sex: Female
  Weight: 104.3 kg

DRUGS (3)
  1. PULMICORT FLEXHALER [Suspect]
     Active Substance: BUDESONIDE
     Dosage: 180 MICROGRAMS 120-DOSE INHALER, ONE PUFF TWICE DAILY
     Route: 055
     Dates: start: 20170913
  2. TEGRETOL XR [Concomitant]
     Active Substance: CARBAMAZEPINE
     Indication: EPILEPSY
     Dosage: 300 MG BY MOUTH EVERY MORNING AND 400 MG BY MOUTH EVERY NIGHT.
     Route: 048
  3. KEPPRA [Concomitant]
     Active Substance: LEVETIRACETAM
     Indication: EPILEPSY
     Route: 048

REACTIONS (5)
  - Throat irritation [Not Recovered/Not Resolved]
  - Device leakage [Unknown]
  - Dysphonia [Not Recovered/Not Resolved]
  - Intentional product misuse [Not Recovered/Not Resolved]
  - Nasal congestion [Not Recovered/Not Resolved]

NARRATIVE: CASE EVENT DATE: 20170913
